FAERS Safety Report 15642773 (Version 1)
Quarter: 2018Q4

REPORT INFORMATION
  Report Type: Spontaneous
  Country: US (occurrence: US)
  Receive Date: 20181121
  Receipt Date: 20181121
  Transmission Date: 20190205
  Serious: Yes (Other)
  Sender: FDA-Public Use
  Company Number: US-RECKITT BENCKISER HEALTHCARE INT LIMITED-RB-93750-2018

PATIENT
  Age: 70 Year
  Sex: Female

DRUGS (1)
  1. MUCINEX SINUS-MAX SEVERE CONGESTION RELIEF [Suspect]
     Active Substance: ACETAMINOPHEN\GUAIFENESIN\PHENYLEPHRINE HYDROCHLORIDE
     Indication: SINUS CONGESTION
     Dosage: TOOK 3 DOSES ALL TOGETHER
     Route: 065
     Dates: start: 20181115

REACTIONS (2)
  - Blood glucose increased [Unknown]
  - Feeling abnormal [Unknown]

NARRATIVE: CASE EVENT DATE: 20181115
